FAERS Safety Report 11531240 (Version 1)
Quarter: 2015Q3

REPORT INFORMATION
  Report Type: Spontaneous
  Country: US (occurrence: US)
  Receive Date: 20150921
  Receipt Date: 20150921
  Transmission Date: 20151125
  Serious: Yes (Death, Other)
  Sender: FDA-Public Use
  Company Number: US-PFIZER INC-2015313718

PATIENT
  Sex: Male

DRUGS (1)
  1. DEPO-TESTOSTERONE [Suspect]
     Active Substance: TESTOSTERONE CYPIONATE
     Indication: HORMONE REPLACEMENT THERAPY
     Dosage: UNK
     Dates: start: 20080902, end: 201404

REACTIONS (4)
  - Coronary artery thrombosis [Unknown]
  - Myocardial infarction [Unknown]
  - Intracardiac thrombus [Unknown]
  - Death [Fatal]

NARRATIVE: CASE EVENT DATE: 20100412
